FAERS Safety Report 9859113 (Version 3)
Quarter: 2014Q1

REPORT INFORMATION
  Report Type: Report from Study
  Country: HU (occurrence: HU)
  Receive Date: 20140131
  Receipt Date: 20140317
  Transmission Date: 20141002
  Serious: Yes (Other)
  Sender: FDA-Public Use
  Company Number: HU-JNJFOC-20130804149

PATIENT
  Age: 56 Year
  Sex: Female

DRUGS (1)
  1. STELARA [Suspect]
     Indication: PSORIASIS
     Route: 058
     Dates: start: 20110726

REACTIONS (12)
  - Pneumonia [Unknown]
  - Nasopharyngitis [Recovered/Resolved]
  - Oropharyngeal pain [Recovered/Resolved]
  - Ear pain [Recovered/Resolved]
  - Cough [Recovered/Resolved]
  - Inflammation [Unknown]
  - Arthritis [Unknown]
  - Diarrhoea [Unknown]
  - Vomiting [Unknown]
  - Mood swings [Unknown]
  - Asthenia [Unknown]
  - Pyrexia [Unknown]
